FAERS Safety Report 8391538-3 (Version None)
Quarter: 2012Q1

REPORT INFORMATION
  Report Type: 
  Country: None (occurrence: None)
  Receive Date: 20120323
  Receipt Date: 20110629
  Transmission Date: 20120608
  Serious: Yes (Death, Hospitalization)
  Sender: FDA-Public Use
  Company Number: 163-21880-11042088

PATIENT
  Age: 80 Year
  Sex: Male

DRUGS (1)
  1. REVLIMID [Suspect]
     Indication: NON-HODGKIN'S LYMPHOMA
     Dosage: 15 MG, EVERY OTHER DAY, PO
     Route: 048
     Dates: start: 20110402, end: 20110418

REACTIONS (2)
  - THROMBOSIS [None]
  - PNEUMONIA [None]
